FAERS Safety Report 13595005 (Version 11)
Quarter: 2019Q1

REPORT INFORMATION
  Report Type: Spontaneous
  Country: JP (occurrence: JP)
  Receive Date: 20170531
  Receipt Date: 20190118
  Transmission Date: 20190417
  Serious: Yes (Hospitalization)
  Sender: FDA-Public Use
  Company Number: JP-ROCHE-1942119

PATIENT
  Age: 14 Year
  Sex: Female
  Weight: 53 kg

DRUGS (7)
  1. PROGRAF [Concomitant]
     Active Substance: TACROLIMUS\TACROLIMUS ANHYDROUS
     Dosage: DOSAGE IS UNCERTAIN.
     Route: 065
     Dates: start: 20170803, end: 20180107
  2. ACTEMRA [Suspect]
     Active Substance: TOCILIZUMAB
     Indication: PRODUCT USED FOR UNKNOWN INDICATION
     Route: 058
     Dates: start: 20171227, end: 20180106
  3. NAIXAN [Concomitant]
     Active Substance: NAPROXEN SODIUM
     Dosage: DOSAGE IS UNCERTAIN.
     Route: 065
     Dates: start: 20170502, end: 20180107
  4. BAKTAR [Concomitant]
     Active Substance: SULFAMETHOXAZOLE\TRIMETHOPRIM
     Dosage: DOSAGE IS UNCERTAIN.
     Route: 065
     Dates: start: 20171214, end: 20180107
  5. MUCOSOLVAN L [Concomitant]
     Active Substance: AMBROXOL HYDROCHLORIDE
     Dosage: DOSAGE IS UNCERTAIN.
     Route: 065
     Dates: start: 20170529, end: 20180107
  6. ACTEMRA [Suspect]
     Active Substance: TOCILIZUMAB
     Indication: JUVENILE IDIOPATHIC ARTHRITIS
     Route: 041
     Dates: start: 20170519, end: 20170519
  7. REBAMIPIDE [Concomitant]
     Active Substance: REBAMIPIDE
     Dosage: DOSAGE IS UNCERTAIN.
     Route: 065

REACTIONS (6)
  - Arthralgia [Unknown]
  - Alveolitis allergic [Recovering/Resolving]
  - Juvenile idiopathic arthritis [Recovering/Resolving]
  - Interstitial lung disease [Recovering/Resolving]
  - Polyarthritis [Unknown]
  - Alveolitis allergic [Recovered/Resolved]

NARRATIVE: CASE EVENT DATE: 20170523
